FAERS Safety Report 16887347 (Version 2)
Quarter: 2019Q4

REPORT INFORMATION
  Report Type: Spontaneous
  Country: IT (occurrence: IT)
  Receive Date: 20191004
  Receipt Date: 20191010
  Transmission Date: 20200122
  Serious: Yes (Hospitalization)
  Sender: FDA-Public Use
  Company Number: IT-JNJFOC-20191002044

PATIENT
  Age: 84 Year
  Sex: Male
  Weight: 68 kg

DRUGS (3)
  1. SERENASE (HALOPERIDOL) [Suspect]
     Active Substance: HALOPERIDOL
     Indication: DELIRIUM
     Route: 048
     Dates: start: 20190825, end: 20190905
  2. TALOFEN [Suspect]
     Active Substance: PROMAZINE HYDROCHLORIDE
     Indication: DELIRIUM
     Dosage: ; AS REQUIRED
     Route: 048
     Dates: start: 20190825, end: 20190901
  3. VALIUM [Suspect]
     Active Substance: DIAZEPAM
     Indication: DELIRIUM
     Dosage: ; AS REQUIRED
     Route: 048
     Dates: start: 20190825, end: 20190902

REACTIONS (1)
  - Sopor [Recovered/Resolved with Sequelae]

NARRATIVE: CASE EVENT DATE: 20190905
